FAERS Safety Report 4493112-8 (Version None)
Quarter: 2004Q4

REPORT INFORMATION
  Report Type: 
  Country: None (occurrence: None)
  Receive Date: 20041104
  Receipt Date: 20041028
  Transmission Date: 20050328
  Serious: Yes (Life-Threatening, Hospitalization, Other)
  Sender: FDA-Public Use
  Company Number: GB-GLAXOSMITHKLINE-B0349672A

PATIENT
  Age: 39 Year
  Sex: Female

DRUGS (2)
  1. PAROXETINE [Suspect]
     Indication: DEPRESSION
     Route: 048
     Dates: start: 20040227, end: 20040923
  2. QUETIAPINE [Concomitant]
     Indication: INSOMNIA
     Dosage: 150MG PER DAY
     Route: 048
     Dates: start: 20040227, end: 20040923

REACTIONS (1)
  - LOSS OF CONSCIOUSNESS [None]
